FAERS Safety Report 18570761 (Version 1)
Quarter: 2020Q4

REPORT INFORMATION
  Report Type: Spontaneous
  Country: IT (occurrence: IT)
  Receive Date: 20201202
  Receipt Date: 20201202
  Transmission Date: 20210114
  Serious: Yes (Other)
  Sender: FDA-Public Use
  Company Number: IT-TEVA-2020-IT-1171239

PATIENT
  Age: 60 Year
  Sex: Male

DRUGS (3)
  1. OMNIC [Concomitant]
     Active Substance: TAMSULOSIN HYDROCHLORIDE
     Indication: BENIGN PROSTATIC HYPERPLASIA
  2. ETOPOSIDE. [Suspect]
     Active Substance: ETOPOSIDE
     Indication: LUNG NEOPLASM
     Route: 042
     Dates: start: 20191023, end: 20191220
  3. CARVEDILOLO RATIOPHARM [Concomitant]
     Indication: HYPERTENSION

REACTIONS (7)
  - Asthenia [Unknown]
  - Leukopenia [Unknown]
  - Nausea [Unknown]
  - Hot flush [Unknown]
  - Pruritus [Unknown]
  - Constipation [Unknown]
  - Feeling cold [Unknown]
